FAERS Safety Report 18971523 (Version 1)
Quarter: 2021Q1

REPORT INFORMATION
  Report Type: Report from Study
  Country: FR (occurrence: FR)
  Receive Date: 20210305
  Receipt Date: 20210305
  Transmission Date: 20210420
  Serious: Yes (Death, Other)
  Sender: FDA-Public Use
  Company Number: FR-BRISTOL-MYERS SQUIBB COMPANY-BMS-2021-020539

PATIENT
  Age: 73 Year
  Sex: Female

DRUGS (1)
  1. NIVOLUMAB [Suspect]
     Active Substance: NIVOLUMAB
     Indication: LUNG NEOPLASM MALIGNANT
     Dosage: 210 MILLIGRAM 15 DAYS
     Route: 042
     Dates: start: 20170822, end: 20180215

REACTIONS (4)
  - Off label use [Unknown]
  - General physical health deterioration [Fatal]
  - Femur fracture [Fatal]
  - Blindness [Unknown]

NARRATIVE: CASE EVENT DATE: 20190923
